FAERS Safety Report 8107099-X (Version None)
Quarter: 2011Q4

REPORT INFORMATION
  Report Type: 
  Country: None (occurrence: None)
  Receive Date: 20111227
  Receipt Date: 20111130
  Transmission Date: 20120403
  Serious: No
  Sender: FDA-Public Use
  Company Number: PHEH2011US010522

PATIENT
  Age: 25 Year
  Sex: Female
  Weight: 115.2 kg

DRUGS (1)
  1. GILENYA [Suspect]
     Indication: MULTIPLE SCLEROSIS
     Dosage: 0.5 MG
     Dates: start: 20110520, end: 20110927

REACTIONS (3)
  - VOMITING [None]
  - MEDICATION ERROR [None]
  - NAUSEA [None]
